FAERS Safety Report 15873790 (Version 2)
Quarter: 2019Q1

REPORT INFORMATION
  Report Type: Spontaneous
  Country: CA (occurrence: CA)
  Receive Date: 20190126
  Receipt Date: 20190315
  Transmission Date: 20190417
  Serious: Yes (Hospitalization, Other)
  Sender: FDA-Public Use
  Company Number: CA-SHIRE-CA201901910

PATIENT

DRUGS (3)
  1. GAMMAGARD LIQUID [Suspect]
     Active Substance: HUMAN IMMUNOGLOBULIN G
     Indication: CHRONIC LYMPHOCYTIC LEUKAEMIA
     Dosage: 35 UNK (LE12T148AB FO 5 GRAM AND LE12T189AB FOR 30 GRAM)
     Route: 042
     Dates: start: 20181228, end: 20181228
  2. GAMMAGARD LIQUID [Suspect]
     Active Substance: HUMAN IMMUNOGLOBULIN G
     Indication: HYPOGAMMAGLOBULINAEMIA
     Dosage: 35 GRAM (LE12T148AB FO 5 GRAM AND LE12T189AB FOR 30 GRAM
     Route: 042
     Dates: start: 20181228, end: 20181228
  3. PANZYGA [Concomitant]
     Active Substance: HUMAN IMMUNOGLOBULIN G
     Indication: PRODUCT USED FOR UNKNOWN INDICATION

REACTIONS (6)
  - Dyspnoea [Unknown]
  - Pyrexia [Unknown]
  - Pancytopenia [Unknown]
  - False positive investigation result [Unknown]
  - Rhonchi [Unknown]
  - Aspergillus infection [Unknown]
